FAERS Safety Report 10382538 (Version 1)
Quarter: 2014Q3

REPORT INFORMATION
  Report Type: Spontaneous
  Country: US (occurrence: US)
  Receive Date: 20140813
  Receipt Date: 20140813
  Transmission Date: 20150326
  Serious: No
  Sender: FDA-Public Use
  Company Number: US-SA-2014SA093207

PATIENT
  Age: 67 Year
  Sex: Female

DRUGS (5)
  1. XARELTO [Concomitant]
     Active Substance: RIVAROXABAN
  2. ANTIHYPERTENSIVES [Concomitant]
     Active Substance: UNSPECIFIED INGREDIENT
  3. MULTAQ [Suspect]
     Active Substance: DRONEDARONE
     Indication: ATRIAL FIBRILLATION
     Route: 048
     Dates: start: 20140701, end: 20140707
  4. CLONAZEPAM. [Concomitant]
     Active Substance: CLONAZEPAM
     Indication: ANXIETY
  5. ATENOLOL. [Concomitant]
     Active Substance: ATENOLOL

REACTIONS (8)
  - Blood pressure increased [Unknown]
  - Swelling face [Unknown]
  - Heart rate decreased [Unknown]
  - Eye swelling [Unknown]
  - Peripheral swelling [Unknown]
  - Headache [Unknown]
  - Feeling abnormal [Unknown]
  - Ear disorder [Unknown]

NARRATIVE: CASE EVENT DATE: 201407
